FAERS Safety Report 24894284 (Version 1)
Quarter: 2025Q1

REPORT INFORMATION
  Report Type: Report from Study
  Country: DE (occurrence: DE)
  Receive Date: 20250128
  Receipt Date: 20250128
  Transmission Date: 20250409
  Serious: Yes (Other)
  Sender: TEVA
  Company Number: DE-002147023-NVSC2020DE058732

PATIENT
  Age: 77 Year
  Sex: Female
  Weight: 72.7 kg

DRUGS (13)
  1. ZOLEDRONIC ACID [Suspect]
     Active Substance: ZOLEDRONIC ACID
     Indication: Product used for unknown indication
     Dosage: DOSAGE TEXT: 3.3 MG, Q4W
     Route: 042
     Dates: start: 20191206, end: 20200817
  2. KISQALI [Suspect]
     Active Substance: RIBOCICLIB
     Indication: Breast cancer
     Dosage: DOSAGE TEXT: 600 MG, QD (21 DAYS INTAKE, 7 DAYS PAUSE)
     Route: 048
     Dates: start: 20200526, end: 20201215
  3. KISQALI [Suspect]
     Active Substance: RIBOCICLIB
     Indication: Breast cancer
     Dosage: DOSAGE TEXT: 600 MG, QD (21 DAYS INTAKE, 7 DAYS PAUSE)
     Route: 048
     Dates: start: 20201217, end: 20210201
  4. KISQALI [Suspect]
     Active Substance: RIBOCICLIB
     Indication: Breast cancer
     Dosage: DOSAGE TEXT: 600 MG, QD (21 DAYS INTAKE, 7 DAYS PAUSE)
     Route: 048
     Dates: start: 20200225, end: 20200518
  5. KISQALI [Suspect]
     Active Substance: RIBOCICLIB
     Indication: Breast cancer
     Dosage: DOSAGE TEXT: 600 MG, QD (21 DAYS INTAKE, 7 DAYS PAUSE)
     Route: 048
     Dates: start: 20210204
  6. KISQALI [Suspect]
     Active Substance: RIBOCICLIB
     Indication: Breast cancer
     Dosage: DOSAGE TEXT: 600 MG, QD (21 DAYS INTAKE, 7 DAYS PAUSE)
     Route: 048
     Dates: start: 20200127, end: 20200223
  7. FULVESTRANT [Suspect]
     Active Substance: FULVESTRANT
     Indication: Breast cancer
     Dosage: DOSAGE TEXT: 500 MG, Q2W (DAILY DOSE)
     Route: 030
     Dates: start: 20191230, end: 20200126
  8. FULVESTRANT [Suspect]
     Active Substance: FULVESTRANT
     Indication: Breast cancer
     Dosage: DOSAGE TEXT: 500 MG, Q4W (DAILY DOSE)
     Route: 030
     Dates: start: 20200127
  9. HYDROCHLOROTHIAZIDE\RAMIPRIL [Concomitant]
     Active Substance: HYDROCHLOROTHIAZIDE\RAMIPRIL
     Indication: Hypertension
     Dosage: DOSAGE TEXT: 1 DF (5/25 MG)
     Route: 048
     Dates: start: 1990
  10. RAMIPRIL [Concomitant]
     Active Substance: RAMIPRIL
     Indication: Hypertension
     Dosage: DOSAGE TEXT: 5 MG
     Route: 048
     Dates: start: 1990
  11. LERCANIDIPINE [Concomitant]
     Active Substance: LERCANIDIPINE
     Indication: Hypertension
     Dosage: DOSAGE TEXT: 1 DF (18,88 MG) (MORNING)
     Route: 048
     Dates: start: 20200303
  12. BISOPROLOL [Concomitant]
     Active Substance: BISOPROLOL
     Indication: Hypertension
     Dosage: DOSAGE TEXT: 5 MG, BID
     Route: 048
     Dates: start: 1990
  13. DENOSUMAB [Concomitant]
     Active Substance: DENOSUMAB
     Indication: Product used for unknown indication
     Dosage: DOSAGE TEXT: 120 MG, QMO (EVERY FOUR WEEKS)
     Route: 058
     Dates: start: 20200914

REACTIONS (7)
  - Diabetes mellitus [Not Recovered/Not Resolved]
  - Blood pressure increased [Not Recovered/Not Resolved]
  - Eastern Cooperative Oncology Group performance status worsened [Not Recovered/Not Resolved]
  - Blood creatinine increased [Not Recovered/Not Resolved]
  - Dyspnoea [Not Recovered/Not Resolved]
  - Anaemia [Recovered/Resolved]
  - Pruritus [Recovering/Resolving]

NARRATIVE: CASE EVENT DATE: 20200224
